FAERS Safety Report 5366965-9 (Version None)
Quarter: 2007Q2

REPORT INFORMATION
  Report Type: 
  Country: None (occurrence: None)
  Receive Date: 20070622
  Receipt Date: 20070614
  Transmission Date: 20071010
  Serious: Yes (Hospitalization)
  Sender: FDA-Public Use
  Company Number: HQWYE630214JUN07

PATIENT
  Sex: Female

DRUGS (1)
  1. AMIODARONE HCL [Suspect]
     Indication: ATRIAL FIBRILLATION
     Dosage: UNKNOWN
     Route: 048
     Dates: end: 20070512

REACTIONS (7)
  - ASTHENIA [None]
  - DRUG TOXICITY [None]
  - DYSPNOEA [None]
  - OEDEMA PERIPHERAL [None]
  - PERICARDIAL EFFUSION [None]
  - PULMONARY OEDEMA [None]
  - RESPIRATORY DISTRESS [None]
